FAERS Safety Report 8043393-9 (Version None)
Quarter: 2012Q1

REPORT INFORMATION
  Report Type: 
  Country: None (occurrence: None)
  Receive Date: 20120112
  Receipt Date: 20120109
  Transmission Date: 20120608
  Serious: Yes (Other)
  Sender: FDA-Public Use
  Company Number: US-CELGENEUS-163-21880-11121816

PATIENT
  Sex: Female

DRUGS (10)
  1. DECADRON [Concomitant]
     Route: 065
  2. DECADRON [Concomitant]
     Dosage: 4 MILLIGRAM
     Route: 065
  3. ATENOLOL [Concomitant]
     Route: 065
  4. NORVASC [Concomitant]
     Route: 065
  5. LEXAPRO [Concomitant]
     Route: 065
  6. TEKTURNA [Concomitant]
     Route: 065
  7. DIOVAN [Concomitant]
     Route: 065
  8. ASPIRIN [Concomitant]
     Route: 065
  9. REVLIMID [Suspect]
     Indication: MULTIPLE MYELOMA
     Dosage: 10 MILLIGRAM
     Route: 048
     Dates: start: 20080609
  10. ACTOS [Concomitant]
     Route: 065

REACTIONS (5)
  - BRONCHITIS [None]
  - OSTEOLYSIS [None]
  - SINUSITIS [None]
  - SLEEP DISORDER [None]
  - FATIGUE [None]
